FAERS Safety Report 6545688-4 (Version None)
Quarter: 2010Q1

REPORT INFORMATION
  Report Type: 
  Country: None (occurrence: None)
  Receive Date: 20100121
  Receipt Date: 20100108
  Transmission Date: 20100710
  Serious: Yes (Death)
  Sender: FDA-Public Use
  Company Number: DE-WATSON-2010-00456

PATIENT
  Age: 61 Year
  Sex: Male
  Weight: 70 kg

DRUGS (33)
  1. SIMVASTATIN [Suspect]
     Indication: DRUG USE FOR UNKNOWN INDICATION
     Dosage: 20 MG, UNKNOWN
     Route: 048
     Dates: start: 20091025, end: 20091027
  2. ARIXTRA [Suspect]
     Indication: DRUG USE FOR UNKNOWN INDICATION
     Dosage: 2 1/2 MG, UNKNOWN
     Route: 058
     Dates: start: 20091020, end: 20091028
  3. ASPIRIN [Suspect]
     Indication: DRUG USE FOR UNKNOWN INDICATION
     Dosage: 100 MG, UNKNOWN
     Route: 048
     Dates: start: 20091020, end: 20091028
  4. AGOPTON [Suspect]
     Indication: DRUG USE FOR UNKNOWN INDICATION
     Dosage: 15 MG, UNKNOWN
     Route: 048
     Dates: start: 20091020, end: 20091028
  5. FINLEPSIN [Suspect]
     Indication: DRUG USE FOR UNKNOWN INDICATION
     Dosage: 200 MG, 3
     Route: 048
     Dates: start: 20091020, end: 20091028
  6. BELOC ZOK [Suspect]
     Indication: DRUG USE FOR UNKNOWN INDICATION
     Dosage: 47 1/2 MG, UNKNOWN
     Route: 048
     Dates: start: 20091020, end: 20091024
  7. BELOC ZOK [Suspect]
     Dosage: 23 1/4 MG, UNKNOWN
     Route: 048
     Dates: start: 20091020, end: 20091024
  8. TAVOR                              /00273201/ [Suspect]
     Indication: DRUG USE FOR UNKNOWN INDICATION
     Dosage: 1 MG, 2
     Route: 048
     Dates: start: 20091020, end: 20091026
  9. DELIX                              /00885601/ [Suspect]
     Indication: DRUG USE FOR UNKNOWN INDICATION
     Dosage: 2 1/2 MG, UNKNOWN
     Route: 048
     Dates: start: 20091021, end: 20091024
  10. ZOPICLONE [Suspect]
     Indication: DRUG USE FOR UNKNOWN INDICATION
     Dosage: 7 1/2 MG, UNKNOWN
     Route: 048
     Dates: start: 20091020, end: 20091026
  11. EUNERPAN [Suspect]
     Indication: DRUG USE FOR UNKNOWN INDICATION
     Dosage: UNK
     Dates: start: 20091020, end: 20091027
  12. HAEMITON [Suspect]
     Indication: DRUG USE FOR UNKNOWN INDICATION
     Dosage: 0.075 MG, 2
     Route: 048
     Dates: start: 20091020, end: 20091024
  13. TORSEMIDE [Suspect]
     Indication: DRUG USE FOR UNKNOWN INDICATION
     Dosage: 10 MG, 3
     Route: 048
     Dates: start: 20091020
  14. TORSEMIDE [Suspect]
     Dosage: 10 MG, 2
     Route: 048
     Dates: start: 20091021, end: 20091022
  15. TORSEMIDE [Suspect]
     Dosage: 10 MG, UNKNOWN
     Route: 048
     Dates: start: 20091023, end: 20091026
  16. TORSEMIDE [Suspect]
     Dosage: 10 MG, 3
     Route: 048
     Dates: start: 20091027
  17. ARTERENOL [Suspect]
     Indication: DRUG USE FOR UNKNOWN INDICATION
     Dosage: 10 MG/50 ML NACL 0.9%, PERFUSOR
     Dates: start: 20091025
  18. ARTERENOL [Suspect]
     Dosage: 10 MG/50 ML NACL 0.9%
     Dates: start: 20091028
  19. SULBACTAM [Suspect]
     Indication: DRUG USE FOR UNKNOWN INDICATION
     Dosage: 1 G, 3
     Route: 042
     Dates: start: 20091025, end: 20091027
  20. FLUNITRAZEPAM [Suspect]
     Indication: DRUG USE FOR UNKNOWN INDICATION
     Dosage: 1 MG, UNKNOWN
     Dates: start: 20091028
  21. FUROSEMIDE [Suspect]
     Indication: DRUG USE FOR UNKNOWN INDICATION
     Dosage: 20 MG, 3
     Route: 042
     Dates: start: 20091028
  22. ZIENAM [Suspect]
     Indication: DRUG USE FOR UNKNOWN INDICATION
     Dosage: 1 MG, 3
     Dates: start: 20091028
  23. BERLINSULIN H [Concomitant]
     Indication: DRUG USE FOR UNKNOWN INDICATION
     Dosage: 10 8 10 10 10 IE
     Route: 058
     Dates: start: 20091020
  24. BERLINSULIN H [Concomitant]
     Dosage: 6 6 6 4 IE
     Route: 058
     Dates: start: 20091021, end: 20091025
  25. BERLINSULIN H [Concomitant]
     Dosage: 10 16 14 10 IE
     Route: 058
     Dates: start: 20091021, end: 20091025
  26. BERLINSULIN H [Concomitant]
     Dosage: UNK
  27. BERLINSULIN B [Concomitant]
     Indication: DRUG USE FOR UNKNOWN INDICATION
     Dosage: 8 0 0 14 IE
     Route: 058
     Dates: start: 20091020, end: 20091021
  28. NAC                                /00082801/ [Concomitant]
     Indication: DRUG USE FOR UNKNOWN INDICATION
     Dosage: 600 MG, UNKNOWN
     Route: 048
     Dates: start: 20091020, end: 20091028
  29. KALINOR-BRAUSETABLETTEN [Concomitant]
     Indication: DRUG USE FOR UNKNOWN INDICATION
     Dosage: 2X2.17 MG KALIUMCITRAT UND 2 G KALIUMHYDROGENCARBONAT
     Route: 048
     Dates: start: 20091024
  30. KALINOR-BRAUSETABLETTEN [Concomitant]
     Dosage: 2X2X2.17 MG KALIUMCITRAT UND 2 G KALIUMHYDROGENCARBONAT
     Route: 048
     Dates: start: 20091025
  31. KALINOR-BRAUSETABLETTEN [Concomitant]
     Dosage: 2X2.17 MG KALIUMCITRAT UND 2 G KALIUMHYDROGENCARBONAT
     Route: 048
     Dates: start: 20091026
  32. KALINOR-BRAUSETABLETTEN [Concomitant]
     Dosage: 3X2.17 MG KALIUMCITRAT UND 2 G KALIUMHYDROGENCARBONAT
     Route: 048
     Dates: start: 20091027
  33. KALINOR-BRAUSETABLETTEN [Concomitant]
     Dosage: 3X2.17 MG KALIUMCITRAT UND 2 G KALIUMHYDROGENCARBONAT
     Route: 048
     Dates: start: 20091021, end: 20091023

REACTIONS (4)
  - RENAL FAILURE ACUTE [None]
  - RHABDOMYOLYSIS [None]
  - SEPSIS [None]
  - URINE COLOUR ABNORMAL [None]
